FAERS Safety Report 14015103 (Version 1)
Quarter: 2017Q3

REPORT INFORMATION
  Report Type: Other
  Country: CA (occurrence: CA)
  Receive Date: 20170927
  Receipt Date: 20170927
  Transmission Date: 20171128
  Serious: Yes (Death, Hospitalization, Other)
  Sender: FDA-Public Use
  Company Number: CA-APOTEX-2017AP018660

PATIENT
  Sex: Female

DRUGS (4)
  1. APO-FLUCONAZOLE [Suspect]
     Active Substance: FLUCONAZOLE
     Indication: PRODUCT USED FOR UNKNOWN INDICATION
     Dosage: UNK
     Route: 065
  2. COTELLIC [Suspect]
     Active Substance: COBIMETINIB
     Indication: METASTATIC MALIGNANT MELANOMA
     Dosage: 60 MG, QD
     Route: 048
  3. ZELBORAF [Suspect]
     Active Substance: VEMURAFENIB
     Indication: METASTATIC MALIGNANT MELANOMA
     Dosage: 960 MG, BID
     Route: 048
  4. HYDROCHLOROTHIAZIDE. [Concomitant]
     Active Substance: HYDROCHLOROTHIAZIDE
     Indication: PRODUCT USED FOR UNKNOWN INDICATION
     Dosage: UNK
     Route: 065

REACTIONS (12)
  - Renal failure [Fatal]
  - Urosepsis [Fatal]
  - Drug interaction [Fatal]
  - Dyspepsia [Fatal]
  - Diarrhoea [Fatal]
  - Acrochordon [Fatal]
  - Dizziness [Fatal]
  - Mass [Fatal]
  - Headache [Fatal]
  - Nausea [Fatal]
  - Pain [Fatal]
  - Vomiting [Fatal]
